FAERS Safety Report 4976123-5 (Version None)
Quarter: 2006Q2

REPORT INFORMATION
  Report Type: 
  Country: None (occurrence: None)
  Receive Date: 20060411
  Receipt Date: 20060331
  Transmission Date: 20061013
  Serious: Yes (Other)
  Sender: FDA-Public Use
  Company Number: S06-USA-00900-01

PATIENT
  Age: 23 Year
  Sex: Female

DRUGS (3)
  1. CELEXA [Suspect]
     Indication: ANXIETY
     Dosage: 20 MG QD PO
     Route: 048
     Dates: start: 20060214, end: 20060310
  2. CELEXA [Suspect]
     Indication: ANXIETY
     Dosage: 10 MG QD PO
     Route: 048
     Dates: start: 20060311, end: 20060313
  3. CELEXA [Suspect]
     Indication: ANXIETY
     Dosage: 5 MG QD PO
     Route: 048
     Dates: start: 20060314, end: 20060317

REACTIONS (8)
  - BIPOLAR DISORDER [None]
  - DISTURBANCE IN ATTENTION [None]
  - NAUSEA [None]
  - OBSESSIVE THOUGHTS [None]
  - PARAESTHESIA [None]
  - SELF INJURIOUS BEHAVIOUR [None]
  - SELF-INJURIOUS IDEATION [None]
  - SUICIDAL IDEATION [None]
